FAERS Safety Report 25953483 (Version 1)
Quarter: 2025Q4

REPORT INFORMATION
  Report Type: Spontaneous
  Country: US (occurrence: None)
  Receive Date: 20251023
  Receipt Date: 20251023
  Transmission Date: 20260118
  Serious: Yes (Other)
  Sender: FDA-CTU
  Company Number: None

PATIENT
  Age: 30 Year
  Sex: Male
  Weight: 78 kg

DRUGS (6)
  1. LITHIUM [Suspect]
     Active Substance: LITHIUM
     Indication: Affective disorder
     Dosage: FREQUENCY : AT BEDTIME;?
     Route: 048
     Dates: end: 20250828
  2. lithium 600mg po QHS [Concomitant]
     Dates: start: 20250710, end: 20250820
  3. lithium 300mg po QD [Concomitant]
     Dates: start: 20250710, end: 20250813
  4. lithium 300mg po QHS [Concomitant]
     Dates: end: 20250828
  5. Haloperidol 10 mg po QD + 20 mg po QHS [Concomitant]
  6. Sertraline 200 mg po QD [Concomitant]

REACTIONS (3)
  - Tremor [None]
  - Therapy change [None]
  - Therapy cessation [None]

NARRATIVE: CASE EVENT DATE: 20250730
